FAERS Safety Report 5802741-8 (Version None)
Quarter: 2008Q3

REPORT INFORMATION
  Report Type: 
  Country: None (occurrence: None)
  Receive Date: 20080708
  Receipt Date: 20080630
  Transmission Date: 20090109
  Serious: Yes (Other)
  Sender: FDA-Public Use
  Company Number: US-ASTRAZENECA-2008UW13052

PATIENT
  Age: 76 Year
  Sex: Female
  Weight: 56.7 kg

DRUGS (3)
  1. CRESTOR [Suspect]
     Indication: BLOOD CHOLESTEROL INCREASED
     Route: 048
     Dates: start: 20080613
  2. SYNTHROID [Concomitant]
  3. MICARDIS [Concomitant]

REACTIONS (6)
  - CHEST DISCOMFORT [None]
  - DYSPHONIA [None]
  - FATIGUE [None]
  - GLOSSODYNIA [None]
  - LIP SWELLING [None]
  - OROPHARYNGEAL PAIN [None]
